FAERS Safety Report 15012932 (Version 2)
Quarter: 2018Q3

REPORT INFORMATION
  Report Type: Spontaneous
  Country: US (occurrence: US)
  Receive Date: 20180614
  Receipt Date: 20180712
  Transmission Date: 20181010
  Serious: Yes (Other)
  Sender: FDA-Public Use
  Company Number: US-TEVA-2018-US-905521

PATIENT
  Age: 74 Year
  Sex: Female

DRUGS (7)
  1. DIPHENHYDRAMINE?ACETAMINOPHEN [Suspect]
     Active Substance: ACETAMINOPHEN\DIPHENHYDRAMINE HYDROCHLORIDE
     Dosage: 25?500MG ONE TABLET EVERY NIGHT
     Route: 065
  2. GABAPENTIN. [Suspect]
     Active Substance: GABAPENTIN
     Dosage: THREE TIMES A DAY
     Route: 065
  3. CARBAMAZEPINE. [Suspect]
     Active Substance: CARBAMAZEPINE
     Dosage: THREE TIMES A DAY
     Route: 065
  4. SODIUM?CHLORIDE [Suspect]
     Active Substance: SODIUM CHLORIDE
     Dosage: THREE TIMES A DAY
     Route: 065
  5. ALPRAZOLAM. [Suspect]
     Active Substance: ALPRAZOLAM
     Dosage: 3 TIMES A DAY
     Route: 065
  6. OXYBUTYNIN. [Suspect]
     Active Substance: OXYBUTYNIN CHLORIDE
     Dosage: EVERY NIGHT
     Route: 065
  7. CARBAMAZEPINE. [Suspect]
     Active Substance: CARBAMAZEPINE
     Dosage: ONE MORE DOSE OF 100MG THREE TIMES A DAY
     Route: 065

REACTIONS (4)
  - Impaired quality of life [Recovered/Resolved]
  - Amnesia [Recovered/Resolved]
  - Impaired driving ability [Recovered/Resolved]
  - Syncope [Recovered/Resolved]
